FAERS Safety Report 7801898-7 (Version None)
Quarter: 2011Q4

REPORT INFORMATION
  Report Type: 
  Country: None (occurrence: None)
  Receive Date: 20111007
  Receipt Date: 20110926
  Transmission Date: 20120403
  Serious: Yes (Hospitalization)
  Sender: FDA-Public Use
  Company Number: ZA-SANOFI-AVENTIS-2011SA063081

PATIENT
  Age: 50 Year
  Sex: Female

DRUGS (6)
  1. FLUTICASONE PROPIONATE [Concomitant]
     Indication: SINUSITIS
     Dosage: DOSE:1 PUFF(S)
     Route: 065
     Dates: start: 20110913, end: 20110927
  2. KETEK [Suspect]
     Indication: BRONCHITIS
     Route: 048
     Dates: start: 20110915, end: 20110922
  3. KETEK [Suspect]
     Indication: SINUSITIS
     Route: 048
     Dates: start: 20110915, end: 20110922
  4. PULMISON [Concomitant]
     Indication: SINUSITIS
     Route: 065
     Dates: start: 20110913, end: 20110918
  5. DESLORATADINE [Concomitant]
     Route: 065
     Dates: start: 20110913, end: 20110927
  6. CLARITHROMYCIN [Concomitant]
     Route: 065
     Dates: start: 20110913, end: 20110918

REACTIONS (4)
  - DIZZINESS [None]
  - DIPLOPIA [None]
  - MALAISE [None]
  - FEELING ABNORMAL [None]
